FAERS Safety Report 9120303 (Version 2)
Quarter: 2013Q2

REPORT INFORMATION
  Report Type: Spontaneous
  Country: IN (occurrence: IN)
  Receive Date: 20130226
  Receipt Date: 20130426
  Transmission Date: 20140414
  Serious: Yes (Other)
  Sender: FDA-Public Use
  Company Number: IN-ELI_LILLY_AND_COMPANY-IN201302005133

PATIENT
  Age: 59 Year
  Sex: Male

DRUGS (3)
  1. GEMCITABINE HYDROCHLORIDE [Suspect]
     Indication: NON-SMALL CELL LUNG CANCER METASTATIC
  2. CISPLATIN [Concomitant]
     Indication: NON-SMALL CELL LUNG CANCER METASTATIC
  3. DOCETAXEL [Concomitant]

REACTIONS (7)
  - Renal infarct [Recovered/Resolved with Sequelae]
  - Splenic infarction [Recovered/Resolved with Sequelae]
  - Blood lactate dehydrogenase increased [None]
  - Protein S decreased [None]
  - Non-small cell lung cancer metastatic [None]
  - Malignant neoplasm progression [None]
  - Kidney fibrosis [None]
